FAERS Safety Report 13134855 (Version 2)
Quarter: 2020Q4

REPORT INFORMATION
  Report Type: Report from Study
  Country: CA (occurrence: CA)
  Receive Date: 20170120
  Receipt Date: 20201109
  Transmission Date: 20210113
  Serious: Yes (Life-Threatening, Other)
  Sender: FDA-Public Use
  Company Number: CA-GILEAD-2016-0235115

PATIENT
  Age: 43 Year
  Sex: Male

DRUGS (1)
  1. EMTRICITABINE;TENOFOVIR DISOPROXIL FUMARATE [Suspect]
     Active Substance: EMTRICITABINE\TENOFOVIR DISOPROXIL FUMARATE
     Indication: PROPHYLAXIS AGAINST HIV INFECTION
     Dosage: UNK
     Route: 065
     Dates: start: 20150714

REACTIONS (5)
  - Drug resistance [Unknown]
  - Viral mutation identified [Unknown]
  - Drug ineffective [Unknown]
  - Acute HIV infection [Unknown]
  - Fatigue [Unknown]
